FAERS Safety Report 7043273-1 (Version None)
Quarter: 2010Q4

REPORT INFORMATION
  Report Type: 
  Country: None (occurrence: None)
  Receive Date: 20101013
  Receipt Date: 20100324
  Transmission Date: 20110411
  Serious: No
  Sender: FDA-Public Use
  Company Number: US-ASTRAZENECA-2010SE13116

PATIENT
  Sex: Male
  Weight: 82.6 kg

DRUGS (9)
  1. SYMBICORT [Suspect]
     Indication: ASTHMA
     Dosage: 160/4.5 UG TWO PUFFS BID
     Route: 055
  2. LIPITOR [Concomitant]
     Route: 065
  3. CLARITIN [Concomitant]
     Route: 065
  4. LOVAZA [Concomitant]
     Route: 065
  5. CALCIUM [Concomitant]
     Route: 065
  6. NASAL INHALER [Concomitant]
     Route: 045
  7. ALBUTEROL [Concomitant]
     Route: 065
  8. VITAMINS [Concomitant]
     Route: 065
  9. SINGULAIR [Concomitant]
     Route: 065

REACTIONS (7)
  - ASTHMA [None]
  - BLOOD PRESSURE INCREASED [None]
  - CONDITION AGGRAVATED [None]
  - COUGH [None]
  - DYSPHONIA [None]
  - SLEEP DISORDER [None]
  - SPUTUM INCREASED [None]
